FAERS Safety Report 8979476 (Version 1)
Quarter: 2012Q4

REPORT INFORMATION
  Report Type: 
  Country: US (occurrence: US)
  Receive Date: 20121221
  Receipt Date: 20121221
  Transmission Date: 20130627
  Serious: Yes (Hospitalization, Other)
  Sender: FDA-Public Use
  Company Number: US-ELI_LILLY_AND_COMPANY-US201212003067

PATIENT
  Sex: Male
  Weight: 111.11 kg

DRUGS (25)
  1. BYETTA [Suspect]
     Indication: TYPE 2 DIABETES MELLITUS
     Dosage: 5 ug, bid
     Route: 058
     Dates: start: 2007
  2. BYETTA [Suspect]
     Dosage: 10 ug, bid
     Route: 058
  3. BYETTA [Suspect]
     Dosage: 10 ug, bid
     Route: 058
     Dates: start: 201210
  4. NOVOLOG [Concomitant]
     Indication: TYPE 2 DIABETES MELLITUS
     Dosage: 1 UNK, UNK
     Route: 058
  5. ASPIRIN                                 /USA/ [Concomitant]
     Dosage: 81 mg, qd
     Route: 048
  6. ASPIRIN                                 /USA/ [Concomitant]
     Dosage: 325 mg, qd
     Route: 048
  7. DILTIAZEM [Concomitant]
     Indication: ATRIAL FIBRILLATION
     Dosage: 240 mg, qd
     Route: 048
  8. DILTIAZEM [Concomitant]
     Dosage: 360 mg, qd
     Route: 048
  9. FLUTICASONE [Concomitant]
     Dosage: UNK UNK, bid
     Route: 045
  10. LEVOTHYROXINE [Concomitant]
     Dosage: 0.25 ug, each morning
     Route: 048
  11. FUROSEMIDE [Concomitant]
     Dosage: 20 mg, qd
     Route: 048
  12. METHYLPHENIDATE [Concomitant]
     Dosage: 10 mg, bid
     Route: 048
  13. FEXOFENADINE [Concomitant]
     Indication: HYPERSENSITIVITY
     Dosage: 180 mg, qd
     Route: 048
  14. VALSARTAN [Concomitant]
     Dosage: 150 mg, qd
     Route: 048
  15. PRAVASTATIN [Concomitant]
     Indication: BLOOD CHOLESTEROL
     Dosage: 80 mg, qd
     Route: 048
  16. POTASSIUM CITRATE [Concomitant]
     Dosage: UNK UNK, qd
     Route: 048
  17. OMEPRAZOLE [Concomitant]
     Dosage: 20 mg, qd
     Route: 048
  18. DIVALPROEX [Concomitant]
     Dosage: 500 mg, each evening
     Route: 048
  19. MELATONIN [Concomitant]
     Dosage: 10 mg, each evening
     Route: 048
  20. ZOLPIDEM [Concomitant]
     Dosage: 10 mg, each evening
     Route: 048
  21. DOXAZOSIN [Concomitant]
     Dosage: 4 mg, qd
     Route: 048
  22. HYDROXYZINE [Concomitant]
     Dosage: UNK UNK, each evening
     Route: 048
  23. VITAMIN D [Concomitant]
     Dosage: UNK
  24. MULTIVITAMINS WITH MINERALS [Concomitant]
     Dosage: UNK
  25. NOVOLOG [Concomitant]
     Indication: TYPE 2 DIABETES MELLITUS
     Dosage: UNK

REACTIONS (7)
  - Chest pain [Not Recovered/Not Resolved]
  - Cardiac failure congestive [Unknown]
  - Atrial fibrillation [Unknown]
  - Weight increased [Recovering/Resolving]
  - Increased appetite [Recovered/Resolved]
  - Blood glucose increased [Unknown]
  - Off label use [Not Recovered/Not Resolved]
